FAERS Safety Report 21819174 (Version 1)
Quarter: 2023Q1

REPORT INFORMATION
  Report Type: Spontaneous
  Country: US (occurrence: US)
  Receive Date: 20230104
  Receipt Date: 20230104
  Transmission Date: 20230418
  Serious: Yes (Death, Hospitalization, Other)
  Sender: FDA-Public Use
  Company Number: US-GILEAD-2023-0611518

PATIENT
  Sex: Male

DRUGS (3)
  1. VEKLURY [Suspect]
     Active Substance: REMDESIVIR
     Indication: COVID-19
     Dosage: UNK
     Route: 065
     Dates: start: 20210718, end: 20210722
  2. DEXAMETHASONE [Suspect]
     Active Substance: DEXAMETHASONE
     Indication: COVID-19
     Dosage: UNK
     Route: 065
     Dates: start: 20210718, end: 20210730
  3. INSULIN NOS [Suspect]
     Active Substance: INSULIN NOS
     Indication: Diabetes mellitus
     Route: 065

REACTIONS (9)
  - Acute kidney injury [Fatal]
  - Dry gangrene [Fatal]
  - Deep vein thrombosis [Fatal]
  - Diabetes mellitus [Unknown]
  - Leg amputation [Unknown]
  - Blindness [Unknown]
  - Hiccups [Unknown]
  - Oedema [Unknown]
  - Rhabdomyolysis [Unknown]
